FAERS Safety Report 6766575-2 (Version None)
Quarter: 2010Q2

REPORT INFORMATION
  Report Type: 
  Country: None (occurrence: None)
  Receive Date: 20100611
  Receipt Date: 20100602
  Transmission Date: 20101027
  Serious: Yes (Other)
  Sender: FDA-Public Use
  Company Number: US-PURDUE-USA-2010-0043918

PATIENT
  Sex: Female

DRUGS (1)
  1. DILAUDID [Suspect]
     Indication: PROCEDURAL PAIN
     Dosage: 2 MG, SEE TEXT
     Route: 042
     Dates: start: 20100510

REACTIONS (4)
  - HYPOXIC ENCEPHALOPATHY [None]
  - PRODUCT MEASURED POTENCY ISSUE [None]
  - THERAPEUTIC RESPONSE INCREASED [None]
  - UNRESPONSIVE TO STIMULI [None]
